FAERS Safety Report 22192976 (Version 4)
Quarter: 2023Q2

REPORT INFORMATION
  Report Type: Spontaneous
  Country: JP (occurrence: None)
  Receive Date: 20230410
  Receipt Date: 20230619
  Transmission Date: 20230721
  Serious: Yes (Death, Hospitalization)
  Sender: FDA-Public Use
  Company Number: 2023A023325

PATIENT
  Age: 82 Year
  Sex: Female
  Weight: 56 kg

DRUGS (4)
  1. TAGRISSO [Suspect]
     Active Substance: OSIMERTINIB
     Indication: Non-small cell lung cancer
     Route: 048
     Dates: start: 20201125, end: 20230123
  2. NEXIUM [Concomitant]
     Active Substance: ESOMEPRAZOLE MAGNESIUM
     Indication: Gastrooesophageal reflux disease
     Dosage: AFTER DINNER
     Route: 048
     Dates: start: 20230124, end: 20230124
  3. AMBROXOL HYDROCHLORIDE [Concomitant]
     Active Substance: AMBROXOL HYDROCHLORIDE
     Indication: Bronchitis
     Route: 048
     Dates: start: 20220415, end: 20230123
  4. MOSAPRIDE CITRATE [Concomitant]
     Active Substance: MOSAPRIDE CITRATE
     Indication: Gastrooesophageal reflux disease
     Route: 048
     Dates: start: 20220930, end: 20230123

REACTIONS (9)
  - Interstitial lung disease [Fatal]
  - Fatigue [Recovered/Resolved]
  - Dizziness [Recovered/Resolved]
  - Malaise [Recovered/Resolved]
  - Hypoaesthesia [Recovered/Resolved]
  - Electrocardiogram T wave abnormal [Unknown]
  - COVID-19 [Recovered/Resolved]
  - Cystitis [Recovered/Resolved]
  - Diarrhoea [Recovering/Resolving]

NARRATIVE: CASE EVENT DATE: 20201129
